FAERS Safety Report 7099699-3 (Version None)
Quarter: 2010Q4

REPORT INFORMATION
  Report Type: 
  Country: None (occurrence: None)
  Receive Date: 20101112
  Receipt Date: 20101029
  Transmission Date: 20110411
  Serious: Yes (Death, Other)
  Sender: FDA-Public Use
  Company Number: IT-BAYER-201044245GPV

PATIENT
  Age: 83 Year
  Sex: Male

DRUGS (7)
  1. ASPIRIN [Suspect]
     Indication: PROPHYLAXIS
     Dosage: TOTAL DAILY DOSE: 100 MG
     Route: 048
     Dates: start: 20090101, end: 20101004
  2. CARBOLITHIUM [Concomitant]
  3. EFFEXOR [Concomitant]
     Route: 048
  4. VISKEN [Concomitant]
     Route: 048
  5. METFORAL [Concomitant]
  6. AVODART [Concomitant]
  7. ALFUZOSIN [Concomitant]
     Route: 048

REACTIONS (5)
  - APHASIA [None]
  - ATRIAL FIBRILLATION [None]
  - MYOCARDIAL ISCHAEMIA [None]
  - SUBARACHNOID HAEMORRHAGE [None]
  - SUBDURAL HAEMORRHAGE [None]
